FAERS Safety Report 20670963 (Version 1)
Quarter: 2022Q2

REPORT INFORMATION
  Report Type: Other
  Country: CN (occurrence: CN)
  Receive Date: 20220404
  Receipt Date: 20220404
  Transmission Date: 20220721
  Serious: Yes (Other)
  Sender: FDA-Public Use
  Company Number: CN-GE HEALTHCARE-2022CSU002173

PATIENT
  Age: 50 Year
  Sex: Male
  Weight: 76 kg

DRUGS (2)
  1. OMNIPAQUE [Suspect]
     Active Substance: IOHEXOL
     Indication: Diagnostic procedure
     Dosage: 65 ML, SINGLE
     Route: 042
     Dates: start: 20220301, end: 20220301
  2. OMNIPAQUE [Suspect]
     Active Substance: IOHEXOL
     Indication: Product used for unknown indication

REACTIONS (6)
  - Feeling abnormal [Recovering/Resolving]
  - Amaurosis [Recovering/Resolving]
  - Hypersensitivity [Recovering/Resolving]
  - Blood pressure decreased [Recovering/Resolving]
  - Dizziness [Recovering/Resolving]
  - Hyperhidrosis [Recovering/Resolving]

NARRATIVE: CASE EVENT DATE: 20220301
